FAERS Safety Report 11145214 (Version 2)
Quarter: 2019Q2

REPORT INFORMATION
  Report Type: Spontaneous
  Country: US (occurrence: US)
  Receive Date: 20150526
  Receipt Date: 20190614
  Transmission Date: 20190711
  Serious: No
  Sender: FDA-Public Use
  Company Number: US-JNJFOC-20150516207

PATIENT
  Age: 31 Year
  Sex: Male

DRUGS (3)
  1. RISPERDAL [Suspect]
     Active Substance: RISPERIDONE
     Indication: BEHAVIOUR DISORDER
     Dosage: VARYING DOSE OF 2 MG AND 5 MG
     Route: 048
     Dates: start: 20081028, end: 20141030
  2. RISPERIDONE. [Suspect]
     Active Substance: RISPERIDONE
     Indication: PRODUCT USED FOR UNKNOWN INDICATION
     Route: 048
  3. RISPERDAL CONSTA [Suspect]
     Active Substance: RISPERIDONE
     Indication: BEHAVIOUR DISORDER
     Dosage: VARYING DOSE OF 25 MG AND 37.5 MG
     Route: 030
     Dates: start: 20081028, end: 20141030

REACTIONS (5)
  - Fatigue [Unknown]
  - Overweight [Unknown]
  - Gynaecomastia [Unknown]
  - Nausea [Unknown]
  - Sedation [Unknown]

NARRATIVE: CASE EVENT DATE: 201406
